FAERS Safety Report 18567019 (Version 1)
Quarter: 2020Q4

REPORT INFORMATION
  Report Type: Spontaneous
  Country: DE (occurrence: DE)
  Receive Date: 20201202
  Receipt Date: 20201202
  Transmission Date: 20210114
  Serious: Yes (Hospitalization, Other)
  Sender: FDA-Public Use
  Company Number: DE-SA-2020SA319657

PATIENT

DRUGS (16)
  1. SPIRONOLACTON [Concomitant]
     Active Substance: SPIRONOLACTONE
     Indication: HYPERTENSION
     Dosage: 25 MG, 1-0-0-0
  2. VERAPAMIL [Concomitant]
     Active Substance: VERAPAMIL HYDROCHLORIDE
     Indication: HYPERTENSION
     Dosage: 120 MG, 1-0-1-0
  3. OXYGEN. [Concomitant]
     Active Substance: OXYGEN
     Indication: RESPIRATORY FAILURE
     Dosage: 3-4L/MIN, QD
  4. VITAMIN B12 [VITAMIN B12 NOS] [Concomitant]
     Active Substance: CYANOCOBALAMIN
     Indication: ANAEMIA
     Dosage: UNK UNK, Q4W
  5. DUPIXENT [Suspect]
     Active Substance: DUPILUMAB
     Indication: SYSTEMIC SCLERODERMA
     Dosage: 300 MG, QOW
     Route: 058
     Dates: start: 202010, end: 202011
  6. PANTOPRAZOLE [Concomitant]
     Active Substance: PANTOPRAZOLE
     Indication: CHRONIC GASTRITIS
     Dosage: 20 MG, 1-0-1-0
  7. DEKRISTOL [Concomitant]
     Active Substance: CHOLECALCIFEROL
     Indication: OSTEOPOROSIS PROPHYLAXIS
     Dosage: 20000 IE, 1-0-0-0, EVERY 14 DAYS
  8. YOMOGI [SACCHAROMYCES BOULARDII] [Concomitant]
     Active Substance: SACCHAROMYCES CEREVISIAE
     Indication: CONSTIPATION
     Dosage: UNK UNK, PRN
  9. VENTAVIS [Concomitant]
     Active Substance: ILOPROST
     Indication: PULMONARY ARTERIAL HYPERTENSION
  10. L-THYROXIN [LEVOTHYROXINE] [Concomitant]
     Active Substance: LEVOTHYROXINE SODIUM
     Indication: HYPOTHYROIDISM
     Dosage: 75 UG, 1-0-0-0
  11. MACITENTAN [Concomitant]
     Active Substance: MACITENTAN
     Indication: PULMONARY ARTERIAL HYPERTENSION
     Dosage: 10 MG, 1-0-0-0.
  12. SILDENAFIL. [Concomitant]
     Active Substance: SILDENAFIL
     Indication: PULMONARY ARTERIAL HYPERTENSION
     Dosage: 25 MG,1-1-1-0
  13. OPSUMIT [Concomitant]
     Active Substance: MACITENTAN
     Indication: PULMONARY ARTERIAL HYPERTENSION
  14. DUPIXENT [Suspect]
     Active Substance: DUPILUMAB
     Indication: PULMONARY ARTERIAL HYPERTENSION
     Dosage: 600 MG, 1X
     Route: 058
     Dates: start: 20201001, end: 20201001
  15. ELIQUIS [Concomitant]
     Active Substance: APIXABAN
     Indication: URINARY BLADDER SUSPENSION
     Dosage: 25 MG, 1-0-1-0
  16. EISEN-II-SULFAT [Concomitant]
     Active Substance: FERROUS SULFATE
     Indication: IRON DEFICIENCY ANAEMIA
     Dosage: 50 MG,2-0-0-0

REACTIONS (8)
  - Condition aggravated [Unknown]
  - Off label use [Unknown]
  - Pericardial effusion [Unknown]
  - Weight increased [Unknown]
  - N-terminal prohormone brain natriuretic peptide increased [Unknown]
  - Pulmonary arterial hypertension [Unknown]
  - Gastric dilatation [Unknown]
  - Stress [Unknown]

NARRATIVE: CASE EVENT DATE: 2020
